FAERS Safety Report 9938745 (Version 1)
Quarter: 2014Q1

REPORT INFORMATION
  Report Type: Spontaneous
  Country: US (occurrence: US)
  Receive Date: 20140303
  Receipt Date: 20140303
  Transmission Date: 20141002
  Serious: No
  Sender: FDA-Public Use
  Company Number: US-PFIZER INC-2014056948

PATIENT
  Age: 62 Year
  Sex: Male
  Weight: 126.98 kg

DRUGS (2)
  1. GABAPENTIN [Suspect]
     Indication: NEUROPATHY PERIPHERAL
     Dosage: 700 MG, 3X/DAY
     Dates: start: 201309, end: 201402
  2. OXYMORPHONE [Concomitant]
     Indication: PAIN
     Dosage: 05 MG, AS NEEDED
     Dates: start: 2005

REACTIONS (1)
  - Fatigue [Recovered/Resolved]
